FAERS Safety Report 4331668-6 (Version None)
Quarter: 2004Q2

REPORT INFORMATION
  Report Type: 
  Country: None (occurrence: None)
  Receive Date: 20040401
  Receipt Date: 20040401
  Transmission Date: 20050107
  Serious: Yes (Death)
  Sender: FDA-Public Use
  Company Number: None

PATIENT
  Age: 69 Year
  Sex: Male
  Weight: 86.1834 kg

DRUGS (13)
  1. ETOPOSIDE [Suspect]
     Indication: SMALL CELL LUNG CANCER STAGE UNSPECIFIED
     Dosage: 100 MG/M2 DAYS 1-3 Q 3 WKS X 4
     Dates: start: 20040223, end: 20040225
  2. ETOPOSIDE [Suspect]
     Indication: SMALL CELL LUNG CANCER STAGE UNSPECIFIED
     Dosage: 100 MG/M2 DAYS 1-3 Q 3 WKS X 4
     Dates: start: 20040315, end: 20040317
  3. CISPLATIN [Suspect]
     Dosage: 80 MG /M2 Q3 WKS X 4
     Dates: start: 20040223
  4. CISPLATIN [Suspect]
     Dosage: 80 MG /M2 Q3 WKS X 4
     Dates: start: 20040315
  5. AMARYL [Concomitant]
  6. FLOMAX [Concomitant]
  7. PROSCAR [Concomitant]
  8. VICODIN [Concomitant]
  9. ARANESP [Concomitant]
  10. KYTRIL [Concomitant]
  11. DECADRON [Concomitant]
  12. ALOXI [Concomitant]
  13. MANNITOL [Concomitant]

REACTIONS (7)
  - ANXIETY [None]
  - BACK PAIN [None]
  - NAUSEA [None]
  - PNEUMONIA [None]
  - RESPIRATORY DISTRESS [None]
  - RESTLESSNESS [None]
  - URINE OUTPUT DECREASED [None]
